FAERS Safety Report 18783325 (Version 2)
Quarter: 2021Q1

REPORT INFORMATION
  Report Type: Report from Study
  Country: US (occurrence: US)
  Receive Date: 20210125
  Receipt Date: 20210202
  Transmission Date: 20210419
  Serious: Yes (Hospitalization)
  Sender: FDA-Public Use
  Company Number: US-PFIZER INC-2021036334

PATIENT
  Age: 74 Year
  Sex: Female
  Weight: 79 kg

DRUGS (2)
  1. AVELUMAB [Suspect]
     Active Substance: AVELUMAB
     Indication: ENDOMETRIAL CANCER
     Dosage: 800 MG, Q2WK
     Route: 042
     Dates: start: 20200930
  2. AXITINIB [Suspect]
     Active Substance: AXITINIB
     Indication: ENDOMETRIAL CANCER
     Dosage: 5 MG, 2X/DAY
     Dates: start: 20200930

REACTIONS (1)
  - Cardiac failure [Recovering/Resolving]

NARRATIVE: CASE EVENT DATE: 20210119
